FAERS Safety Report 19200323 (Version 1)
Quarter: 2021Q2

REPORT INFORMATION
  Report Type: Spontaneous
  Country: US (occurrence: US)
  Receive Date: 20210430
  Receipt Date: 20210430
  Transmission Date: 20210717
  Serious: No
  Sender: FDA-Public Use
  Company Number: US-EMD SERONO-9233291

PATIENT
  Sex: Female

DRUGS (1)
  1. SEROSTIM [Suspect]
     Active Substance: SOMATROPIN
     Indication: PRODUCT USED FOR UNKNOWN INDICATION

REACTIONS (4)
  - Product label confusion [Unknown]
  - Drug ineffective [Unknown]
  - Adverse event [Unknown]
  - Suspected counterfeit product [Unknown]
